FAERS Safety Report 17668216 (Version 2)
Quarter: 2020Q2

REPORT INFORMATION
  Report Type: Spontaneous
  Country: US (occurrence: US)
  Receive Date: 20200414
  Receipt Date: 20200504
  Transmission Date: 20200713
  Serious: Yes (Death, Hospitalization, Other)
  Sender: FDA-Public Use
  Company Number: US-AUROBINDO-AUR-APL-2020-017973

PATIENT
  Age: 87 Year
  Sex: Male

DRUGS (1)
  1. GABAPENTIN CAPSULES 400 MG [Suspect]
     Active Substance: GABAPENTIN
     Indication: NEUROPATHY PERIPHERAL
     Dosage: 300 MILLIGRAM, TWO TIMES A DAY
     Route: 048

REACTIONS (4)
  - Dementia [Fatal]
  - Cardiac disorder [Fatal]
  - Renal disorder [Fatal]
  - Death [Fatal]

NARRATIVE: CASE EVENT DATE: 20190524
